FAERS Safety Report 4459716-3 (Version None)
Quarter: 2004Q3

REPORT INFORMATION
  Report Type: 
  Country: None (occurrence: None)
  Receive Date: 20040923
  Receipt Date: 20040913
  Transmission Date: 20050211
  Serious: Yes (Death, Hospitalization, Other)
  Sender: FDA-Public Use
  Company Number: US-JNJFOC-20040903701

PATIENT
  Age: 31 Year
  Sex: Female

DRUGS (4)
  1. EXTRA STRENGTH TYLENOL [Suspect]
     Indication: INTENTIONAL MISUSE
     Dosage: 100 G, 1 IN 1 D TOTAL, ORAL
     Route: 048
  2. VICODIN [Suspect]
     Indication: INTENTIONAL MISUSE
     Dosage: SMALL AMOUNT, PO
     Route: 048
  3. ETHANOL (ETHANOL) [Suspect]
     Indication: INTENTIONAL MISUSE
     Dosage: ORAL
     Route: 048
  4. ASPIRIN [Suspect]
     Indication: INTENTIONAL MISUSE
     Dosage: ORAL
     Route: 048

REACTIONS (17)
  - ALANINE AMINOTRANSFERASE INCREASED [None]
  - ASPARTATE AMINOTRANSFERASE INCREASED [None]
  - BLOOD BILIRUBIN INCREASED [None]
  - HEPATIC ENCEPHALOPATHY [None]
  - HEPATIC TRAUMA [None]
  - HYPOTENSION [None]
  - INTERNATIONAL NORMALISED RATIO INCREASED [None]
  - LACTIC ACIDOSIS [None]
  - METABOLIC ACIDOSIS [None]
  - MULTI-ORGAN FAILURE [None]
  - MULTIPLE DRUG OVERDOSE [None]
  - OLIGURIA [None]
  - PULMONARY OEDEMA [None]
  - RENAL FAILURE [None]
  - SELF-MEDICATION [None]
  - SUICIDE ATTEMPT [None]
  - TACHYCARDIA [None]
